FAERS Safety Report 23568710 (Version 1)
Quarter: 2024Q1

REPORT INFORMATION
  Report Type: Spontaneous
  Country: US (occurrence: US)
  Receive Date: 20240227
  Receipt Date: 20240227
  Transmission Date: 20240410
  Serious: Yes (Other)
  Sender: FDA-Public Use
  Company Number: US-PCCINC-2024-PPL-000133

PATIENT

DRUGS (1)
  1. GABLOFEN [Suspect]
     Active Substance: BACLOFEN
     Indication: Product used for unknown indication
     Dosage: 109.1 MCG/DAY AS OF 13-DEC-2023
     Route: 037

REACTIONS (2)
  - Wound dehiscence [Unknown]
  - Infection [Unknown]
